FAERS Safety Report 7661129-8 (Version None)
Quarter: 2011Q3

REPORT INFORMATION
  Report Type: 
  Country: None (occurrence: None)
  Receive Date: 20110805
  Receipt Date: 20100928
  Transmission Date: 20111222
  Serious: No
  Sender: FDA-Public Use
  Company Number: US-ABBOTT-10P-163-0675243-00

PATIENT
  Sex: Female
  Weight: 65.376 kg

DRUGS (4)
  1. NIASPAN [Suspect]
     Indication: HYPERLIPIDAEMIA
     Dosage: AT BEDTIME
     Route: 048
     Dates: start: 20100813, end: 20100920
  2. MONOPRIL [Concomitant]
     Indication: HYPERTENSION
     Route: 048
  3. SIMVASTATIN [Concomitant]
     Indication: HYPERLIPIDAEMIA
     Route: 048
  4. CALCIUM ACETATE [Concomitant]
     Indication: MINERAL SUPPLEMENTATION

REACTIONS (6)
  - SYNCOPE [None]
  - DIZZINESS [None]
  - PARAESTHESIA [None]
  - NAUSEA [None]
  - RED MAN SYNDROME [None]
  - FLUSHING [None]
